FAERS Safety Report 8803605 (Version 1)
Quarter: 2012Q4

REPORT INFORMATION
  Report Type: 
  Country: US (occurrence: US)
  Receive Date: 20120924
  Receipt Date: 20120924
  Transmission Date: 20130627
  Serious: No
  Sender: FDA-Public Use
  Company Number: US-009507513-1209USA005956

PATIENT
  Age: 48 Year
  Sex: Female

DRUGS (3)
  1. EMEND [Suspect]
     Indication: ANTIEMETIC SUPPORTIVE CARE
     Dosage: 150 mg, one dose
     Route: 042
     Dates: start: 20120907
  2. OXYIR [Concomitant]
  3. ATENOLOL [Concomitant]

REACTIONS (1)
  - Drug ineffective [Not Recovered/Not Resolved]
